FAERS Safety Report 16798692 (Version 1)
Quarter: 2019Q4

REPORT INFORMATION
  Report Type: Spontaneous
  Country: US (occurrence: US)
  Receive Date: 20190911
  Receipt Date: 20190911
  Transmission Date: 20200122
  Serious: Yes (Hospitalization)
  Sender: FDA-Public Use
  Company Number: None

PATIENT
  Age: 65 Year
  Sex: Male
  Weight: 100.9 kg

DRUGS (13)
  1. FASENRA [Suspect]
     Active Substance: BENRALIZUMAB
     Indication: NASAL POLYPS
     Dosage: ?          OTHER FREQUENCY:Q4WEEKS X 3 DOSES,;?
     Route: 058
     Dates: start: 20190321
  2. TRIAMCINOLONE OINTMENT [Concomitant]
  3. FLUOCINONIDE TOPICAL OINTMENT [Concomitant]
  4. HYDROCHLOROTHIAZIDE. [Concomitant]
     Active Substance: HYDROCHLOROTHIAZIDE
  5. RANITIDINE. [Concomitant]
     Active Substance: RANITIDINE
  6. ESOMEPRAZOLE. [Concomitant]
     Active Substance: ESOMEPRAZOLE MAGNESIUM
  7. MONTELUKAST [Concomitant]
     Active Substance: MONTELUKAST SODIUM
  8. ALBUTEROL INHALER [Concomitant]
     Active Substance: ALBUTEROL
  9. SYMBICORT [Concomitant]
     Active Substance: BUDESONIDE\FORMOTEROL FUMARATE DIHYDRATE
  10. AMLODIPINE [Concomitant]
     Active Substance: AMLODIPINE BESYLATE
  11. FASENRA [Suspect]
     Active Substance: BENRALIZUMAB
     Indication: ASTHMA
     Dosage: ?          OTHER FREQUENCY:Q4WEEKS X 3 DOSES,;?
     Route: 058
     Dates: start: 20190321
  12. BUDESONIDE NEBULIZER [Concomitant]
     Active Substance: BUDESONIDE
  13. ROSUVASTATIN. [Concomitant]
     Active Substance: ROSUVASTATIN

REACTIONS (6)
  - Decreased appetite [None]
  - Rectal abscess [None]
  - Abdominal discomfort [None]
  - Diarrhoea [None]
  - Therapy cessation [None]
  - Urine output decreased [None]

NARRATIVE: CASE EVENT DATE: 20190703
